FAERS Safety Report 14487969 (Version 1)
Quarter: 2018Q1

REPORT INFORMATION
  Report Type: Spontaneous
  Country: IN (occurrence: IN)
  Receive Date: 20180205
  Receipt Date: 20180205
  Transmission Date: 20180509
  Serious: Yes (Other)
  Sender: FDA-Public Use
  Company Number: PHHY2017IN129701

PATIENT
  Age: 63 Year
  Sex: Female

DRUGS (6)
  1. EXELON PATCH [Suspect]
     Active Substance: RIVASTIGMINE
     Indication: DEMENTIA
     Dosage: 4.6 MG, QD (PATCH 5 (CM2)
     Route: 062
     Dates: start: 201705, end: 201706
  2. LITHOSUN [Concomitant]
     Indication: PRODUCT USED FOR UNKNOWN INDICATION
     Dosage: UNK
     Route: 065
  3. EXELON PATCH [Suspect]
     Active Substance: RIVASTIGMINE
     Indication: BIPOLAR DISORDER
     Dosage: 9.5 MG, QD  (PATCH 10 (CM2)
     Route: 062
     Dates: start: 201707
  4. QUTAN [Concomitant]
     Indication: PRODUCT USED FOR UNKNOWN INDICATION
     Dosage: UNK
     Route: 005
  5. EXELON PATCH [Suspect]
     Active Substance: RIVASTIGMINE
     Dosage: 13.3 MG, QD PATCH 15 (CM2)
     Route: 062
  6. ARMOD [Concomitant]
     Indication: PRODUCT USED FOR UNKNOWN INDICATION
     Dosage: UNK
     Route: 065

REACTIONS (8)
  - Product adhesion issue [Not Recovered/Not Resolved]
  - Application site pruritus [Unknown]
  - Application site rash [Unknown]
  - Wrong technique in product usage process [Unknown]
  - Breast cancer [Unknown]
  - Product storage error [Unknown]
  - Hyperhidrosis [Unknown]
  - Drug ineffective [Unknown]
